FAERS Safety Report 25331033 (Version 1)
Quarter: 2025Q2

REPORT INFORMATION
  Report Type: Spontaneous
  Country: US (occurrence: None)
  Receive Date: 20250519
  Receipt Date: 20250519
  Transmission Date: 20250717
  Serious: Yes (Hospitalization, Other)
  Sender: INCYTE
  Company Number: US-INCYTE CORPORATION-2025IN005406

PATIENT

DRUGS (1)
  1. JAKAFI [Suspect]
     Active Substance: RUXOLITINIB
     Indication: Eosinophilia
     Dosage: 25 MILLIGRAM, BID

REACTIONS (3)
  - Femur fracture [Unknown]
  - Product distribution issue [Unknown]
  - Off label use [Unknown]
